FAERS Safety Report 7100051-2 (Version None)
Quarter: 2010Q4

REPORT INFORMATION
  Report Type: 
  Country: None (occurrence: None)
  Receive Date: 20101112
  Receipt Date: 20101109
  Transmission Date: 20110411
  Serious: Yes (Death)
  Sender: FDA-Public Use
  Company Number: HK-ELI_LILLY_AND_COMPANY-HK201011002699

PATIENT
  Age: 71 Year
  Sex: Male

DRUGS (3)
  1. EFFIENT [Suspect]
     Dosage: 5 MG, UNK
     Route: 065
  2. PLETAL [Concomitant]
     Dosage: 50 MG, UNKNOWN
     Route: 065
  3. ASPIRIN [Concomitant]
     Dosage: UNK, UNKNOWN
     Route: 065

REACTIONS (1)
  - DEATH [None]
